FAERS Safety Report 15041732 (Version 10)
Quarter: 2020Q4

REPORT INFORMATION
  Report Type: Other
  Country: US (occurrence: US)
  Receive Date: 20180621
  Receipt Date: 20201230
  Transmission Date: 20210113
  Serious: Yes (Hospitalization, Other)
  Sender: FDA-Public Use
  Company Number: US-ROCHE-2141593

PATIENT
  Age: 35 Year
  Sex: Female
  Weight: 73.55 kg

DRUGS (28)
  1. OCREVUS [Suspect]
     Active Substance: OCRELIZUMAB
     Dosage: 02/NOV/2018, 30/NOV/2018, 01/JUN/2019, 05/DEC/2019, 05/JUN/2020 AND 07/DEC/2020.
     Route: 042
     Dates: start: 20180530
  2. RESTASIS [Concomitant]
     Active Substance: CYCLOSPORINE
     Dosage: ADMINISTER 0.05 DROPS IN BOTH EYES 2 TIMES DAILY
  3. ZINC SULFATE. [Concomitant]
     Active Substance: ZINC SULFATE
     Route: 048
  4. VITAMIN D3 [Concomitant]
     Active Substance: CHOLECALCIFEROL
     Dosage: TAKE 5 TABLET (5000 UNITS) DAILY
     Route: 048
     Dates: start: 20200721
  5. PROVIGIL [Concomitant]
     Active Substance: MODAFINIL
     Dosage: TAKE 2 TABLETS BY MOUTH DAILY
     Route: 048
  6. MAGNESIUM OXIDE. [Concomitant]
     Active Substance: MAGNESIUM OXIDE
     Route: 048
  7. ATIVAN [Concomitant]
     Active Substance: LORAZEPAM
     Dosage: 30 MINUTES PRIOR TO MRI
     Route: 048
  8. GABAPENTIN. [Concomitant]
     Active Substance: GABAPENTIN
  9. OCREVUS [Suspect]
     Active Substance: OCRELIZUMAB
     Indication: RELAPSING-REMITTING MULTIPLE SCLEROSIS
     Dosage: 15/NOV/2017,
     Route: 042
     Dates: start: 20171101
  10. LACTOBACILLUS ACIDOPHILUS [Concomitant]
     Active Substance: LACTOBACILLUS ACIDOPHILUS
     Dosage: TAKE 2 CAPSULES
     Route: 048
  11. AMANTADINE HCL [Concomitant]
     Active Substance: AMANTADINE HYDROCHLORIDE
     Route: 048
     Dates: start: 20200721
  12. ESTRADIOL. [Concomitant]
     Active Substance: ESTRADIOL
  13. BACLOFEN. [Concomitant]
     Active Substance: BACLOFEN
     Indication: PAIN
     Route: 048
     Dates: start: 20200721
  14. DOK [Concomitant]
     Active Substance: DOCUSATE SODIUM
     Route: 048
  15. CALCIUM CARBONATE. [Concomitant]
     Active Substance: CALCIUM CARBONATE
     Route: 048
  16. FLUTICASONE. [Concomitant]
     Active Substance: FLUTICASONE
     Dosage: 50 MCG/SPRAY SPRAY; AS NEEDED
  17. TRILEPTAL [Concomitant]
     Active Substance: OXCARBAZEPINE
     Route: 048
     Dates: start: 20200721
  18. ZOLPIDEM [Concomitant]
     Active Substance: ZOLPIDEM TARTRATE
     Route: 048
     Dates: start: 20200721
  19. SUMATRIPTAN. [Concomitant]
     Active Substance: SUMATRIPTAN
  20. PROMETHAZINE [Concomitant]
     Active Substance: PROMETHAZINE HYDROCHLORIDE
  21. ANUSOL HC [Concomitant]
     Active Substance: HYDROCORTISONE
     Indication: PRURITUS
     Dosage: INSERT 1 SUPPOSITORY BY RECTUM
     Route: 054
  22. AMPYRA [Concomitant]
     Active Substance: DALFAMPRIDINE
     Route: 048
     Dates: start: 20200721
  23. AMANTADINE. [Concomitant]
     Active Substance: AMANTADINE HYDROCHLORIDE
  24. HYDROCORTISONE ACETATE. [Concomitant]
     Active Substance: HYDROCORTISONE ACETATE
  25. MODAFINIL. [Concomitant]
     Active Substance: MODAFINIL
  26. CHOLECALCIFEROL [Concomitant]
     Active Substance: CHOLECALCIFEROL
  27. NEURONTIN [Concomitant]
     Active Substance: GABAPENTIN
     Route: 048
     Dates: start: 20200721
  28. ESTRACE [Concomitant]
     Active Substance: ESTRADIOL
     Route: 048

REACTIONS (27)
  - Sluggishness [Not Recovered/Not Resolved]
  - Pollakiuria [Unknown]
  - Photosensitivity reaction [Unknown]
  - Nausea [Unknown]
  - Endometriosis [Not Recovered/Not Resolved]
  - Multiple sclerosis relapse [Recovered/Resolved]
  - Urinary tract infection [Unknown]
  - Eye ulcer [Unknown]
  - Pain in jaw [Unknown]
  - Ovarian cyst [Not Recovered/Not Resolved]
  - Blood pressure increased [Recovered/Resolved]
  - Ovarian cyst ruptured [Unknown]
  - Ovarian mass [Unknown]
  - Pain [Not Recovered/Not Resolved]
  - Headache [Unknown]
  - Rash [Recovered/Resolved]
  - Pruritus [Recovered/Resolved]
  - Adnexal torsion [Recovered/Resolved]
  - Sepsis [Unknown]
  - Lip blister [Unknown]
  - Insomnia [Unknown]
  - Upper respiratory tract infection [Recovered/Resolved]
  - Tongue blistering [Unknown]
  - Aphthous ulcer [Unknown]
  - Anxiety [Unknown]
  - Mood swings [Unknown]
  - Somnolence [Recovered/Resolved]

NARRATIVE: CASE EVENT DATE: 20171101
